FAERS Safety Report 4471679-3 (Version None)
Quarter: 2004Q4

REPORT INFORMATION
  Report Type: 
  Country: None (occurrence: None)
  Receive Date: 20041012
  Receipt Date: 20040928
  Transmission Date: 20050328
  Serious: Yes (Hospitalization)
  Sender: FDA-Public Use
  Company Number: PHEH2004US10431

PATIENT
  Sex: Male

DRUGS (3)
  1. SERENTIL [Suspect]
     Indication: SCHIZOAFFECTIVE DISORDER
     Dosage: UNK, UNK
     Dates: end: 20040401
  2. SERENTIL [Suspect]
     Dosage: 50 MG, QHS
     Dates: start: 20040916
  3. LEXAPRO [Concomitant]

REACTIONS (5)
  - AGITATION [None]
  - DRUG WITHDRAWAL SYNDROME [None]
  - INSOMNIA [None]
  - PARANOIA [None]
  - SCHIZOAFFECTIVE DISORDER [None]
